FAERS Safety Report 23132797 (Version 1)
Quarter: 2023Q4

REPORT INFORMATION
  Report Type: Spontaneous
  Country: GB (occurrence: GB)
  Receive Date: 20231101
  Receipt Date: 20231101
  Transmission Date: 20240110
  Serious: Yes (Other)
  Sender: FDA-Public Use
  Company Number: None

PATIENT

DRUGS (9)
  1. LAMICTAL [Suspect]
     Active Substance: LAMOTRIGINE
     Indication: Product used for unknown indication
     Dosage: 25 MG, QD (WEEK 1 DISPERSED IN 10)
     Route: 065
     Dates: start: 20230825
  2. ATROPINE SULFATE [Concomitant]
     Active Substance: ATROPINE SULFATE
     Indication: Product used for unknown indication
     Dosage: 1 DF, QD (DROP ONTO OR BELOW THE TONGUE CAN IN)
     Route: 065
     Dates: start: 20230814, end: 20230815
  3. EPILIM [Concomitant]
     Active Substance: VALPROATE SODIUM
     Indication: Product used for unknown indication
     Dosage: 400 MG, BID (10ML)
     Route: 065
     Dates: start: 20231026
  4. FEXOFENADINE [Concomitant]
     Active Substance: FEXOFENADINE HYDROCHLORIDE
     Indication: Product used for unknown indication
     Dosage: UNK UNK, QD (AS NECESSARY)
     Route: 065
     Dates: start: 20230926, end: 20231026
  5. FLURANDRENOLIDE [Concomitant]
     Active Substance: FLURANDRENOLIDE
     Indication: Product used for unknown indication
     Dosage: 1 DF, BID (APPLY TO OVER GRANULATED SKIN AROUN)
     Route: 065
     Dates: start: 20221028
  6. LEVETIRACETAM [Concomitant]
     Active Substance: LEVETIRACETAM
     Indication: Product used for unknown indication
     Dosage: 250 MG, BID (2.5ML DOSE REDUCTION )
     Route: 065
     Dates: start: 20230818
  7. MACROGOL COMPOUND [Concomitant]
     Indication: Product used for unknown indication
     Dosage: UNK (1 SACHETS DAILY-ADJUST DOSE AS NEEDED)
     Route: 065
     Dates: start: 20220312
  8. METANIUM [Concomitant]
     Indication: Product used for unknown indication
     Dosage: UNK (APPLY AS NEEDED)
     Route: 065
     Dates: start: 20221208
  9. ALBUTEROL [Concomitant]
     Active Substance: ALBUTEROL
     Indication: Product used for unknown indication
     Dosage: UNK UNK, QD (1 DOSE UP TO 4 TIMES/DAY, MINIMUM 4, AS NECESSARY)
     Route: 055
     Dates: start: 20200623

REACTIONS (1)
  - Drug reaction with eosinophilia and systemic symptoms [Recovering/Resolving]
